FAERS Safety Report 13551561 (Version 1)
Quarter: 2017Q2

REPORT INFORMATION
  Report Type: Spontaneous
  Country: SK (occurrence: SK)
  Receive Date: 20170516
  Receipt Date: 20170516
  Transmission Date: 20170830
  Serious: Yes (Hospitalization, Disabling)
  Sender: FDA-Public Use
  Company Number: SK-TEVA-766422ISR

PATIENT
  Age: 55 Year
  Sex: Male

DRUGS (5)
  1. EQUORAL [Suspect]
     Active Substance: CYCLOSPORINE
     Indication: PSORIASIS
     Route: 048
     Dates: start: 201505, end: 201506
  2. EQUORAL [Suspect]
     Active Substance: CYCLOSPORINE
     Route: 048
     Dates: start: 201505, end: 201703
  3. EQUORAL [Suspect]
     Active Substance: CYCLOSPORINE
     Route: 048
     Dates: start: 201506, end: 201703
  4. EXCIPIAL U LIPOLOTIO [Concomitant]
     Route: 061
     Dates: start: 201505
  5. BALNEUM HERMAL PLUS [Concomitant]
     Route: 061
     Dates: start: 201505

REACTIONS (7)
  - Headache [Recovering/Resolving]
  - Neoplasm [Recovering/Resolving]
  - Disorientation [Recovering/Resolving]
  - Dysgraphia [Recovering/Resolving]
  - Speech disorder [Recovering/Resolving]
  - Balance disorder [Recovering/Resolving]
  - Memory impairment [Recovering/Resolving]

NARRATIVE: CASE EVENT DATE: 201702
